FAERS Safety Report 9047042 (Version 1)
Quarter: 2013Q1

REPORT INFORMATION
  Report Type: Spontaneous
  Country: IT (occurrence: IT)
  Receive Date: 20130204
  Receipt Date: 20130204
  Transmission Date: 20140127
  Serious: Yes (Other)
  Sender: FDA-Public Use
  Company Number: IT-MYLANLABS-2013S1001807

PATIENT
  Age: 36 Year
  Sex: Female

DRUGS (1)
  1. ACICLOVIR [Suspect]
     Indication: HERPES SIMPLEX
     Route: 048
     Dates: start: 20120813, end: 20120816

REACTIONS (2)
  - Urticaria [Recovering/Resolving]
  - Drug eruption [Recovering/Resolving]
